FAERS Safety Report 10476739 (Version 2)
Quarter: 2014Q4

REPORT INFORMATION
  Report Type: Spontaneous
  Country: DE (occurrence: DE)
  Receive Date: 20140925
  Receipt Date: 20141024
  Transmission Date: 20150528
  Serious: Yes (Death, Hospitalization, Other)
  Sender: FDA-Public Use
  Company Number: GXKR2014DE003605

PATIENT
  Age: 48 Year
  Sex: Female
  Weight: 62 kg

DRUGS (7)
  1. METOPROLOL [Suspect]
     Active Substance: METOPROLOL
     Indication: INTENTIONAL PRODUCT MISUSE
     Dosage: FEMORAL BLOOD CONCENTRATION: 29.8 MG/L (THERAPEUTIC RANGE 0.035-0.50)
     Route: 065
  2. OXAZEPAM. [Concomitant]
     Active Substance: OXAZEPAM
     Dosage: FEMORAL BLOOD CONCENTRATION: 0.14 MG/L (THERAPEUTIC RANGE: 0.200-1.50)
     Route: 065
  3. DIPHENHYDRAMIN [Concomitant]
     Active Substance: DIPHENHYDRAMINE
     Dosage: FEMORAL VEIN BLOOD CONCENTRATION: 0.86 (THERAPEUTIC RANGE: 0.050-1.00)
     Route: 065
  4. ATRACURIUM BESILATE [Concomitant]
     Active Substance: ATRACURIUM BESYLATE
     Dosage: FEMORAL VEIN BLOOD CONCENTRATION: POSITIVE
     Route: 065
  5. NORDAZEPAM [Suspect]
     Active Substance: NORDAZEPAM
     Dosage: FEMORAL BLOOD VEIN CONCENTRATION: 2.9 MG/L (THERAPEUTIC RANGE: 0.020-0.20)
     Route: 065
  6. PETHIDIN [Suspect]
     Active Substance: MEPERIDINE
     Dosage: FEMORAL VEIN BLOOD CONCENTRATION: POSITIVE
     Route: 065
  7. ETOMIDATE. [Concomitant]
     Active Substance: ETOMIDATE
     Dosage: FEMORAL VEIN BLOOD CONCENTRATION: POSITIVE
     Route: 065

REACTIONS (3)
  - Poisoning [Fatal]
  - Loss of consciousness [Fatal]
  - Cardiogenic shock [Fatal]
